FAERS Safety Report 18682901 (Version 2)
Quarter: 2021Q1

REPORT INFORMATION
  Report Type: Report from Study
  Country: AR (occurrence: AR)
  Receive Date: 20201230
  Receipt Date: 20210106
  Transmission Date: 20210419
  Serious: Yes (Death, Hospitalization, Other)
  Sender: FDA-Public Use
  Company Number: AR-BRISTOL-MYERS SQUIBB COMPANY-BMS-2020-110964

PATIENT
  Age: 75 Year
  Sex: Male

DRUGS (1)
  1. APIXABAN [Suspect]
     Active Substance: APIXABAN
     Indication: PRODUCT USED FOR UNKNOWN INDICATION
     Dosage: 5 MILLIGRAM
     Route: 065
     Dates: start: 20190816, end: 202009

REACTIONS (4)
  - Respiratory failure [Fatal]
  - Cerebrovascular accident [Unknown]
  - Lung neoplasm malignant [Unknown]
  - Asthenia [Unknown]

NARRATIVE: CASE EVENT DATE: 202009
